FAERS Safety Report 5619295-1 (Version None)
Quarter: 2008Q1

REPORT INFORMATION
  Report Type: 
  Country: None (occurrence: None)
  Receive Date: 20080206
  Receipt Date: 20080117
  Transmission Date: 20080703
  Serious: Yes (Other)
  Sender: FDA-Public Use
  Company Number: ENTC2007-0354

PATIENT
  Sex: Female
  Weight: 74.83 kg

DRUGS (1)
  1. STALEVO (TABLET) (LEVODOPA, CARSIDOPA, ENTACAPONE) [Suspect]
     Indication: PARKINSON'S DISEASE
     Dosage: ORAL
     Route: 048
     Dates: start: 20071119

REACTIONS (7)
  - ARTHRITIS [None]
  - ASTHENIA [None]
  - DIZZINESS [None]
  - GENERAL PHYSICAL HEALTH DETERIORATION [None]
  - HYPERHIDROSIS [None]
  - NAUSEA [None]
  - VOMITING [None]
